FAERS Safety Report 13707671 (Version 1)
Quarter: 2017Q2

REPORT INFORMATION
  Report Type: Spontaneous
  Country: US (occurrence: US)
  Receive Date: 20170630
  Receipt Date: 20170630
  Transmission Date: 20170830
  Serious: Yes (Other)
  Sender: FDA-Public Use
  Company Number: US-PFIZER INC-2017284829

PATIENT
  Age: 60 Year
  Sex: Female
  Weight: 109 kg

DRUGS (1)
  1. TIKOSYN [Suspect]
     Active Substance: DOFETILIDE
     Dosage: UNK

REACTIONS (5)
  - Multiple fractures [Recovering/Resolving]
  - Drug dose omission [Unknown]
  - Fall [Recovering/Resolving]
  - Ankle fracture [Recovering/Resolving]
  - Dizziness [Unknown]

NARRATIVE: CASE EVENT DATE: 20170414
